FAERS Safety Report 7087799-3 (Version None)
Quarter: 2010Q4

REPORT INFORMATION
  Report Type: 
  Country: None (occurrence: None)
  Receive Date: 20101108
  Receipt Date: 20101027
  Transmission Date: 20110411
  Serious: Yes (Hospitalization, Other)
  Sender: FDA-Public Use
  Company Number: FR-CELGENEUS-056-50794-10062838

PATIENT
  Sex: Male

DRUGS (15)
  1. VIDAZA [Suspect]
     Route: 050
  2. VIDAZA [Suspect]
     Route: 065
     Dates: end: 20100620
  3. INSULIN [Concomitant]
     Indication: DIABETES MELLITUS
     Route: 050
  4. PERINDOPRIL ERBUMINE [Concomitant]
     Route: 065
  5. BISOPROLOL FUMARATE [Concomitant]
     Route: 065
  6. IKOREL [Concomitant]
     Route: 048
  7. KARDEGIC [Interacting]
  8. MAGNOGEN [Concomitant]
     Route: 048
  9. TAHOR [Concomitant]
     Route: 048
  10. MOPRAL [Concomitant]
     Route: 048
  11. STILNOX [Concomitant]
     Route: 048
  12. NOVORAPID [Concomitant]
     Route: 050
  13. LANTUS [Concomitant]
     Route: 050
  14. EPINITRIL [Concomitant]
     Route: 062
  15. LEXAQUIN [Concomitant]
     Route: 065

REACTIONS (1)
  - PARTIAL SEIZURES [None]
